FAERS Safety Report 25486705 (Version 2)
Quarter: 2025Q3

REPORT INFORMATION
  Report Type: Report from Study
  Country: US (occurrence: US)
  Receive Date: 20250627
  Receipt Date: 20250912
  Transmission Date: 20251020
  Serious: No
  Sender: AMGEN
  Company Number: US-AMGEN-USASP2025123256

PATIENT
  Age: 70 Year
  Sex: Female
  Weight: 45.9 kg

DRUGS (17)
  1. REPATHA [Suspect]
     Active Substance: EVOLOCUMAB
     Indication: Blood cholesterol increased
     Dosage: 140 MILLIGRAM, Q2WK
     Route: 058
     Dates: start: 20250324
  2. REPATHA [Suspect]
     Active Substance: EVOLOCUMAB
     Route: 058
     Dates: end: 20250630
  3. ATENOLOL [Concomitant]
     Active Substance: ATENOLOL
     Dosage: 25 MILLIGRAM, TID
     Route: 058
  4. BIOTIN [Concomitant]
     Active Substance: BIOTIN
     Dosage: 5000 MILLIGRAM, BID
  5. B12 [Concomitant]
  6. ENTRESTO [Concomitant]
     Active Substance: SACUBITRIL\VALSARTAN
  7. FAMOTIDINE [Concomitant]
     Active Substance: FAMOTIDINE
     Route: 058
  8. FLECAINIDE [Concomitant]
     Active Substance: FLECAINIDE
     Dosage: 50 MILLIGRAM, BID
     Route: 058
  9. FUROSEMIDE [Concomitant]
     Active Substance: FUROSEMIDE
     Route: 058
  10. MAGNESIUM [Concomitant]
     Active Substance: MAGNESIUM
  11. PANTOPRAZOLE [Concomitant]
     Active Substance: PANTOPRAZOLE
     Route: 058
  12. POTASSIUM [Concomitant]
     Active Substance: POTASSIUM
  13. PREMARIN [Concomitant]
     Active Substance: ESTROGENS, CONJUGATED
     Route: 058
  14. VITAMIN C [Concomitant]
     Active Substance: ASCORBIC ACID
     Route: 058
  15. VITAMIN D [Concomitant]
     Active Substance: VITAMIN D NOS
  16. XARELTO [Concomitant]
     Active Substance: RIVAROXABAN
  17. ZINC [Concomitant]
     Active Substance: ZINC

REACTIONS (17)
  - Vertigo [Unknown]
  - Vulvovaginal burning sensation [Unknown]
  - Injection site warmth [Unknown]
  - Pruritus [Not Recovered/Not Resolved]
  - Alopecia [Unknown]
  - Skin burning sensation [Not Recovered/Not Resolved]
  - Vulvovaginal pruritus [Unknown]
  - Weight increased [Unknown]
  - Dizziness [Unknown]
  - Diarrhoea [Unknown]
  - Injection site pain [Unknown]
  - Injection site erythema [Unknown]
  - Injection site pruritus [Unknown]
  - Injection site swelling [Unknown]
  - Sleep disorder [Unknown]
  - Abdominal discomfort [Unknown]
  - Palpitations [Unknown]

NARRATIVE: CASE EVENT DATE: 20250616
